FAERS Safety Report 6767416-X (Version None)
Quarter: 2010Q2

REPORT INFORMATION
  Report Type: 
  Country: None (occurrence: None)
  Receive Date: 20100610
  Receipt Date: 20100526
  Transmission Date: 20101027
  Serious: Yes (Other)
  Sender: FDA-Public Use
  Company Number: DEP_00352_2010

PATIENT
  Sex: Female
  Weight: 81.1939 kg

DRUGS (12)
  1. GLUMETZA [Suspect]
     Indication: TYPE 2 DIABETES MELLITUS
     Dosage: (500 MG BID ORAL)
     Route: 048
     Dates: start: 20070304, end: 20100325
  2. LIPITOR [Suspect]
     Indication: HYPERCHOLESTEROLAEMIA
     Dosage: (20 MG QD ORAL)
     Route: 048
     Dates: end: 20100325
  3. DIOVAN HCT [Concomitant]
  4. AMLODIPINE [Concomitant]
  5. JANUVIA [Concomitant]
  6. MULTI-VITAMINS [Concomitant]
  7. VITAMIN D [Concomitant]
  8. SIMVASTATIN [Concomitant]
  9. LUMIGAN [Concomitant]
  10. ASPIRIN [Concomitant]
  11. TYLENOL (CAPLET) [Concomitant]
  12. TYLENOL PM [Concomitant]

REACTIONS (9)
  - CATARACT [None]
  - GLYCOSYLATED HAEMOGLOBIN INCREASED [None]
  - MUSCLE SPASMS [None]
  - MYALGIA [None]
  - NAUSEA [None]
  - OEDEMA PERIPHERAL [None]
  - PRODUCT ODOUR ABNORMAL [None]
  - PRODUCT QUALITY ISSUE [None]
  - PRODUCT TASTE ABNORMAL [None]
